FAERS Safety Report 7434168-X (Version None)
Quarter: 2011Q2

REPORT INFORMATION
  Report Type: 
  Country: None (occurrence: None)
  Receive Date: 20110425
  Receipt Date: 20110418
  Transmission Date: 20111010
  Serious: Yes (Other)
  Sender: FDA-Public Use
  Company Number: US-PFIZER INC-2011085514

PATIENT
  Sex: Male
  Weight: 110.66 kg

DRUGS (1)
  1. ADVIL COLD AND SINUS [Suspect]
     Indication: SINUSITIS
     Dosage: UNK, DAILY
     Dates: start: 20110401

REACTIONS (3)
  - SHOCK [None]
  - DIZZINESS [None]
  - DYSPNOEA [None]
